FAERS Safety Report 21134942 (Version 1)
Quarter: 2022Q3

REPORT INFORMATION
  Report Type: Report from Study
  Country: DE (occurrence: DE)
  Receive Date: 20220727
  Receipt Date: 20220727
  Transmission Date: 20221026
  Serious: Yes (Other)
  Sender: FDA-Public Use
  Company Number: DE-TEVA-2022-DE-2057151

PATIENT
  Sex: Female

DRUGS (1)
  1. COPAXONE [Suspect]
     Active Substance: GLATIRAMER ACETATE
     Indication: Multiple sclerosis
     Dosage: 20 MILLIGRAM DAILY;
     Dates: start: 20191113, end: 2022

REACTIONS (4)
  - Intervertebral disc operation [Unknown]
  - Dilated pores [Unknown]
  - Skin disorder [Unknown]
  - Weight decreased [Unknown]
